FAERS Safety Report 25833735 (Version 1)
Quarter: 2025Q3

REPORT INFORMATION
  Report Type: Spontaneous
  Country: RU (occurrence: RU)
  Receive Date: 20250923
  Receipt Date: 20250923
  Transmission Date: 20251020
  Serious: Yes (Other)
  Sender: ABBVIE
  Company Number: RU-ABBVIE-6466883

PATIENT
  Age: 64 Year
  Sex: Female

DRUGS (6)
  1. RINVOQ [Suspect]
     Active Substance: UPADACITINIB
     Indication: Spondylitis
     Dosage: 15 MILLIGRAM
     Route: 048
     Dates: start: 202309, end: 202506
  2. RINVOQ [Suspect]
     Active Substance: UPADACITINIB
     Indication: Spondylitis
     Dosage: 15 MG
     Route: 048
     Dates: start: 202506, end: 202509
  3. METHOTREXATE [Concomitant]
     Active Substance: METHOTREXATE
     Indication: Product used for unknown indication
     Dosage: 15 MG PER WEEK
     Route: 065
  4. CELEBREX [Concomitant]
     Active Substance: CELECOXIB
     Indication: Product used for unknown indication
     Dates: end: 202311
  5. CELEBREX [Concomitant]
     Active Substance: CELECOXIB
     Indication: Product used for unknown indication
     Dates: start: 202311
  6. CELEBREX [Concomitant]
     Active Substance: CELECOXIB
     Indication: Product used for unknown indication
     Dates: start: 20221120, end: 2023

REACTIONS (2)
  - Latent tuberculosis [Not Recovered/Not Resolved]
  - Off label use [Recovered/Resolved]

NARRATIVE: CASE EVENT DATE: 20250601
